FAERS Safety Report 22303945 (Version 7)
Quarter: 2025Q4

REPORT INFORMATION
  Report Type: Spontaneous
  Country: US (occurrence: US)
  Receive Date: 20230510
  Receipt Date: 20251111
  Transmission Date: 20260117
  Serious: No
  Sender: PFIZER
  Company Number: US-PFIZER INC-202300182742

PATIENT
  Age: 75 Year
  Sex: Female
  Weight: 84.82 kg

DRUGS (6)
  1. IBRANCE [Suspect]
     Active Substance: PALBOCICLIB
     Indication: Bone cancer
     Dosage: 100 MG, CYCLIC (100MG EVERYDAY ONE A DAY , 3 WEEKS ON ONE WEEK OFF)
     Dates: start: 20221118
  2. IBRANCE [Suspect]
     Active Substance: PALBOCICLIB
     Indication: Breast cancer female
     Dosage: 75 MG, DAILY (TAKE 1 TABLET (75 MG TOTAL) BY MOUTH 1 (ONE) TIME A DAY)
     Route: 048
  3. ANASTROZOLE [Concomitant]
     Active Substance: ANASTROZOLE
     Indication: Bone cancer
     Dosage: 1 MG, 1X/DAY
  4. LOSARTAN POTASSIUM [Concomitant]
     Active Substance: LOSARTAN POTASSIUM
     Indication: Blood pressure abnormal
     Dosage: 100 MG
  5. SOTALOL [Concomitant]
     Active Substance: SOTALOL
     Indication: Cardiac disorder
     Dosage: 80 MG, 2X/DAY (ONE AT NIGHT AND ONE IN MORNING)
  6. XARELTO [Concomitant]
     Active Substance: RIVAROXABAN
     Indication: Atrial fibrillation
     Dosage: 15 MG

REACTIONS (2)
  - Weight increased [Not Recovered/Not Resolved]
  - Off label use [Unknown]
